FAERS Safety Report 9509306 (Version 1)
Quarter: 2013Q3

REPORT INFORMATION
  Report Type: Spontaneous
  Country: US (occurrence: US)
  Receive Date: 20130909
  Receipt Date: 20130909
  Transmission Date: 20140515
  Serious: No
  Sender: FDA-Public Use
  Company Number: US-BRISTOL-MYERS SQUIBB COMPANY-17316738

PATIENT
  Age: 38 Year
  Sex: Male
  Weight: 108.84 kg

DRUGS (11)
  1. ABILIFY [Suspect]
     Indication: SOMNOLENCE
     Dosage: INTER-2 WEEKS?DOSE REDUCED TO 2.5MG
     Route: 048
  2. ABILIFY [Suspect]
     Indication: DEPRESSION
     Dosage: INTER-2 WEEKS?DOSE REDUCED TO 2.5MG
     Route: 048
  3. CYMBALTA [Suspect]
     Indication: DEPRESSION
     Route: 048
  4. CYMBALTA [Suspect]
     Indication: SOMNOLENCE
     Route: 048
  5. DILAUDID [Concomitant]
     Route: 037
  6. BACLOFEN [Concomitant]
     Indication: HYPOTONIA
  7. GABAPENTIN [Concomitant]
     Route: 048
  8. METFORMIN [Concomitant]
  9. ZONISAMIDE [Concomitant]
  10. TRAZODONE HCL [Concomitant]
     Dosage: AT NITE TIME
  11. LISINOPRIL [Concomitant]

REACTIONS (1)
  - Weight increased [Unknown]
